FAERS Safety Report 9059336 (Version 1)
Quarter: 2013Q1

REPORT INFORMATION
  Report Type: Spontaneous
  Country: IN (occurrence: IN)
  Receive Date: 20130211
  Receipt Date: 20130211
  Transmission Date: 20140127
  Serious: Yes (Death, Other)
  Sender: FDA-Public Use
  Company Number: IN-BRISTOL-MYERS SQUIBB COMPANY-17334061

PATIENT
  Age: 28 Year
  Sex: Male

DRUGS (1)
  1. SPRYCEL [Suspect]
     Indication: CHRONIC MYELOID LEUKAEMIA
     Dosage: 1DF: 2 TAB DAILY.
     Dates: start: 20121001, end: 20130114

REACTIONS (2)
  - Death [Fatal]
  - Bone marrow transplant [Unknown]
